FAERS Safety Report 18158588 (Version 1)
Quarter: 2020Q3

REPORT INFORMATION
  Report Type: Spontaneous
  Country: US (occurrence: US)
  Receive Date: 20200817
  Receipt Date: 20200817
  Transmission Date: 20201103
  Serious: No
  Sender: FDA-Public Use
  Company Number: NVSC2020US225688

PATIENT
  Sex: Female

DRUGS (1)
  1. TOBRADEX [Suspect]
     Active Substance: DEXAMETHASONE\TOBRAMYCIN
     Indication: CONJUNCTIVITIS
     Dosage: A SMALL AMOUNT IN THE LID OF EACH EYE EVERY NIGHT BEFORE SLEEP
     Route: 065
     Dates: start: 20200630

REACTIONS (2)
  - Superficial injury of eye [Unknown]
  - Eyelid irritation [Unknown]
